FAERS Safety Report 8179561-5 (Version None)
Quarter: 2012Q1

REPORT INFORMATION
  Report Type: 
  Country: None (occurrence: None)
  Receive Date: 20120229
  Receipt Date: 20120229
  Transmission Date: 20120608
  Serious: Yes (Death, Life-Threatening, Hospitalization, Disabling, Other)
  Sender: FDA-Public Use
  Company Number: None

PATIENT
  Sex: Male
  Weight: 113.3993 kg

DRUGS (1)
  1. TYLENOL W/ CODEINE NO. 4 [Suspect]
     Indication: MUSCULOSKELETAL PAIN
     Dates: start: 19790101, end: 19890101

REACTIONS (1)
  - LIVER INJURY [None]
